FAERS Safety Report 8015229-3 (Version None)
Quarter: 2011Q4

REPORT INFORMATION
  Report Type: 
  Country: None (occurrence: None)
  Receive Date: 20111230
  Receipt Date: 20111223
  Transmission Date: 20120403
  Serious: No
  Sender: FDA-Public Use
  Company Number: US-BIOGENIDEC-2011BI048997

PATIENT
  Age: 39 Year
  Sex: Male

DRUGS (2)
  1. TYSABRI [Suspect]
     Indication: MULTIPLE SCLEROSIS
     Route: 042
     Dates: start: 20110707, end: 20110804
  2. TYSABRI [Suspect]
     Route: 042
     Dates: start: 20100224, end: 20101201

REACTIONS (2)
  - OPTIC NERVE DISORDER [None]
  - MUSCULAR WEAKNESS [None]
